FAERS Safety Report 13839041 (Version 1)
Quarter: 2017Q3

REPORT INFORMATION
  Report Type: Spontaneous
  Country: US (occurrence: US)
  Receive Date: 20170805
  Receipt Date: 20170805
  Transmission Date: 20171127
  Serious: No
  Sender: FDA-Public Use
  Company Number: None

PATIENT
  Sex: Male
  Weight: 69.75 kg

DRUGS (3)
  1. SERTRALINE [Concomitant]
     Active Substance: SERTRALINE HYDROCHLORIDE
  2. VIIBRYD [Suspect]
     Active Substance: VILAZODONE HYDROCHLORIDE
     Indication: DEPRESSION
     Dates: start: 20170321
  3. ANTIHISTAMINE [Concomitant]
     Active Substance: ANTIHISTAMINES NOS

REACTIONS (5)
  - Sleep paralysis [None]
  - Drug dependence [None]
  - Wrong technique in product usage process [None]
  - Somnolence [None]
  - Paraesthesia [None]

NARRATIVE: CASE EVENT DATE: 20170620
